FAERS Safety Report 14393806 (Version 1)
Quarter: 2018Q1

REPORT INFORMATION
  Report Type: Spontaneous
  Country: US (occurrence: US)
  Receive Date: 20180116
  Receipt Date: 20180116
  Transmission Date: 20180509
  Serious: No
  Sender: FDA-Public Use
  Company Number: US-BEH-2018086740

PATIENT
  Sex: Female
  Weight: 57.6 kg

DRUGS (1)
  1. HIZENTRA [Suspect]
     Active Substance: HUMAN IMMUNOGLOBULIN G
     Indication: HUMORAL IMMUNE DEFECT
     Dosage: 50 ML, QW
     Route: 058
     Dates: start: 2014

REACTIONS (13)
  - Infusion site erythema [Unknown]
  - Infusion site swelling [Unknown]
  - Diarrhoea [Recovered/Resolved]
  - Growing pains [Unknown]
  - Infusion site pain [Unknown]
  - Headache [Unknown]
  - Back pain [Unknown]
  - Infusion site reaction [Recovered/Resolved]
  - Infusion site pruritus [Unknown]
  - Fatigue [Recovered/Resolved]
  - Pain in extremity [Recovered/Resolved]
  - Food aversion [Unknown]
  - Productive cough [Unknown]

NARRATIVE: CASE EVENT DATE: 2014
